FAERS Safety Report 23331686 (Version 1)
Quarter: 2023Q4

REPORT INFORMATION
  Report Type: Spontaneous
  Country: CN (occurrence: CN)
  Receive Date: 20231222
  Receipt Date: 20231222
  Transmission Date: 20240110
  Serious: Yes (Other)
  Sender: FDA-Public Use
  Company Number: CN-BEH-2023166678

PATIENT
  Age: 75 Year
  Sex: Female

DRUGS (3)
  1. ALBURX [Suspect]
     Active Substance: ALBUMIN HUMAN
     Indication: Ascites
     Dosage: 10 GRAM, OD
     Route: 041
     Dates: start: 20231208, end: 20231208
  2. ALBURX [Suspect]
     Active Substance: ALBUMIN HUMAN
     Indication: Abdominal infection
  3. ALBURX [Suspect]
     Active Substance: ALBUMIN HUMAN
     Indication: Ascites

REACTIONS (1)
  - Chills [Recovering/Resolving]

NARRATIVE: CASE EVENT DATE: 20231208
